FAERS Safety Report 15901823 (Version 2)
Quarter: 2019Q2

REPORT INFORMATION
  Report Type: Report from Study
  Country: BR (occurrence: BR)
  Receive Date: 20190201
  Receipt Date: 20190531
  Transmission Date: 20190711
  Serious: Yes (Death, Hospitalization, Other)
  Sender: FDA-Public Use
  Company Number: BR-BRISTOL-MYERS SQUIBB COMPANY-20868444

PATIENT
  Age: 50 Year
  Sex: Male

DRUGS (1)
  1. BELATACEPT [Suspect]
     Active Substance: BELATACEPT
     Indication: RENAL TRANSPLANT
     Dosage: 5MG/KG
     Route: 042
     Dates: start: 20070104

REACTIONS (3)
  - Transplant dysfunction [Recovered/Resolved]
  - Non-Hodgkin^s lymphoma [Fatal]
  - Weight decreased [Recovered/Resolved]

NARRATIVE: CASE EVENT DATE: 20140509
